FAERS Safety Report 18066115 (Version 1)
Quarter: 2020Q3

REPORT INFORMATION
  Report Type: Spontaneous
  Country: US (occurrence: US)
  Receive Date: 20200724
  Receipt Date: 20200724
  Transmission Date: 20201103
  Serious: Yes (Disabling, Other)
  Sender: FDA-Public Use
  Company Number: None

PATIENT
  Age: 51 Year
  Sex: Female
  Weight: 54 kg

DRUGS (4)
  1. ZYRTEC [Concomitant]
     Active Substance: CETIRIZINE HYDROCHLORIDE
  2. METHYLPREDNISOLONE 4MG DOSEPAK 21S; METHYLPREDNISOLONE TABLETS, USP [Suspect]
     Active Substance: METHYLPREDNISOLONE
     Indication: RASH
     Dosage: ?          QUANTITY:21 TABLET(S);OTHER FREQUENCY:6, 5, 4, 3, 2, 1;?
     Route: 048
     Dates: start: 20190920, end: 20191002
  3. METHYLPREDNISOLONE 4MG DOSEPAK 21S; METHYLPREDNISOLONE TABLETS, USP [Suspect]
     Active Substance: METHYLPREDNISOLONE
     Indication: DERMATITIS CONTACT
     Dosage: ?          QUANTITY:21 TABLET(S);OTHER FREQUENCY:6, 5, 4, 3, 2, 1;?
     Route: 048
     Dates: start: 20190920, end: 20191002
  4. VITAMIN D2 [Concomitant]
     Active Substance: ERGOCALCIFEROL

REACTIONS (7)
  - Discomfort [None]
  - Pruritus [None]
  - Metastases to liver [None]
  - Urticaria [None]
  - Colorectal cancer stage IV [None]
  - Rash [None]
  - Skin burning sensation [None]

NARRATIVE: CASE EVENT DATE: 20190926
